FAERS Safety Report 17147921 (Version 1)
Quarter: 2019Q4

REPORT INFORMATION
  Report Type: Spontaneous
  Country: CO (occurrence: CO)
  Receive Date: 20191212
  Receipt Date: 20191212
  Transmission Date: 20200122
  Serious: Yes (Hospitalization, Other)
  Sender: FDA-Public Use
  Company Number: CO-COLLEGIUM PHARMACEUTICAL, INC.-CO-2019COL001474

PATIENT
  Age: 68 Year
  Sex: Male

DRUGS (2)
  1. TAPENTADOL [Suspect]
     Active Substance: TAPENTADOL
     Indication: CANCER PAIN
     Dosage: 300 MG, QD
     Route: 048
     Dates: start: 20190917
  2. TAPENTADOL [Suspect]
     Active Substance: TAPENTADOL
     Dosage: 200 MG, QD
     Route: 048

REACTIONS (3)
  - Seizure [Unknown]
  - Metastases to central nervous system [Unknown]
  - Dyskinesia [Unknown]

NARRATIVE: CASE EVENT DATE: 20191001
